FAERS Safety Report 6728643-0 (Version None)
Quarter: 2010Q2

REPORT INFORMATION
  Report Type: 
  Country: None (occurrence: None)
  Receive Date: 20100517
  Receipt Date: 20100506
  Transmission Date: 20101027
  Serious: Yes (Other)
  Sender: FDA-Public Use
  Company Number: DE-PFIZER INC-2010051450

PATIENT
  Age: 76 Year
  Sex: Male
  Weight: 74 kg

DRUGS (4)
  1. INSPRA [Suspect]
     Indication: CARDIAC FAILURE
     Dosage: 25 MG, 1X/DAY
     Route: 048
     Dates: start: 20100329, end: 20100423
  2. METOPROLOL SUCCINATE [Concomitant]
     Dosage: 1 DF, 2X/DAY
     Route: 048
     Dates: start: 20100329
  3. RANITIDINE [Concomitant]
     Dosage: 300 MG, 1X/DAY
     Route: 048
     Dates: start: 20100329
  4. LASIX [Concomitant]
     Dosage: 20 MG, 1X/DAY
     Dates: start: 20100329

REACTIONS (1)
  - LIVER FUNCTION TEST ABNORMAL [None]
